FAERS Safety Report 5254520-0 (Version None)
Quarter: 2007Q1

REPORT INFORMATION
  Report Type: 
  Country: None (occurrence: None)
  Receive Date: 20070302
  Receipt Date: 20070221
  Transmission Date: 20070707
  Serious: Yes (Hospitalization)
  Sender: FDA-Public Use
  Company Number: AU-BRISTOL-MYERS SQUIBB COMPANY-13687579

PATIENT
  Age: 66 Year
  Sex: Male
  Weight: 47 kg

DRUGS (10)
  1. CISPLATIN [Suspect]
     Indication: NON-SMALL CELL LUNG CANCER
     Route: 042
     Dates: start: 20070125, end: 20070125
  2. GEMCITABINE [Suspect]
     Indication: NON-SMALL CELL LUNG CANCER
     Route: 042
     Dates: start: 20070125, end: 20070125
  3. PANTOPRAZOLE SODIUM [Concomitant]
     Route: 048
     Dates: start: 20061212
  4. FORMOTEROL FUMARATE [Concomitant]
     Route: 048
     Dates: start: 20061207
  5. FENTANYL [Concomitant]
     Route: 062
     Dates: start: 20061202
  6. TIOTROPIUM BROMIDE [Concomitant]
     Route: 048
     Dates: start: 20061207
  7. FENOTEROL HYDROBROMIDE [Concomitant]
     Route: 048
     Dates: start: 20061207
  8. ACETYLCYSTEINE [Concomitant]
     Route: 048
     Dates: start: 20070105
  9. DIHYDROCODEINE BITARTRATE INJ [Concomitant]
     Route: 048
     Dates: start: 20070112
  10. EPOGEN [Concomitant]
     Route: 048
     Dates: start: 20070118

REACTIONS (2)
  - ANOREXIA [None]
  - ASTHENIA [None]
